FAERS Safety Report 4906062-7 (Version None)
Quarter: 2006Q1

REPORT INFORMATION
  Report Type: 
  Country: None (occurrence: None)
  Receive Date: 20060207
  Receipt Date: 20060110
  Transmission Date: 20060701
  Serious: Yes (Death)
  Sender: FDA-Public Use
  Company Number: 2006-CZ-00277

PATIENT
  Age: 76 Year
  Sex: Female

DRUGS (5)
  1. TRAMADOL HCL [Suspect]
     Indication: OSTEOPOROSIS
     Dosage: 50-100MG PRN, ORAL
     Route: 048
     Dates: start: 20020401, end: 20041201
  2. BENDROFLUMETHIAZIDE [Concomitant]
  3. LANSOPRAZOLE [Concomitant]
  4. RALOXIFENE [Concomitant]
  5. CARBAMAZEPINE [Concomitant]

REACTIONS (1)
  - SUDDEN UNEXPLAINED DEATH IN EPILEPSY [None]
